FAERS Safety Report 16737043 (Version 1)
Quarter: 2019Q3

REPORT INFORMATION
  Report Type: Report from Study
  Country: ES (occurrence: ES)
  Receive Date: 20190823
  Receipt Date: 20190823
  Transmission Date: 20191005
  Serious: Yes (Hospitalization, Other)
  Sender: FDA-Public Use
  Company Number: ES-GLAXOSMITHKLINE-ES2019EME149945

PATIENT

DRUGS (2)
  1. MICOFENOLATO MOFETIL [Concomitant]
     Active Substance: MYCOPHENOLATE MOFETIL
     Indication: PRODUCT USED FOR UNKNOWN INDICATION
     Dosage: UNK
  2. BELIMUMAB [Suspect]
     Active Substance: BELIMUMAB
     Indication: PRODUCT USED FOR UNKNOWN INDICATION
     Dosage: UNK

REACTIONS (6)
  - Pleural effusion [Unknown]
  - Mitral valve incompetence [Unknown]
  - Pneumonia [Unknown]
  - Cardiac valve disease [Unknown]
  - Renal impairment [Unknown]
  - Pleuritic pain [Unknown]
